FAERS Safety Report 7382417-9 (Version None)
Quarter: 2011Q1

REPORT INFORMATION
  Report Type: 
  Country: None (occurrence: None)
  Receive Date: 20110329
  Receipt Date: 20110225
  Transmission Date: 20110831
  Serious: Yes (Hospitalization, Other)
  Sender: FDA-Public Use
  Company Number: US-BAYER-201022420NA

PATIENT
  Sex: Female

DRUGS (18)
  1. TIZANIDINE HYDROCHLORIDE [Concomitant]
     Dosage: 4 MG, UNK
     Route: 048
  2. UNCODEABLE ^UNCLASSIFIABLE^ [Concomitant]
     Route: 048
  3. HYDROCODONE BITARTRATE AND ACETAMINOPHEN [Concomitant]
     Dosage: 5-500
     Route: 048
  4. FLUCONAZOLE [Concomitant]
     Dosage: 150 MG, UNK
     Route: 048
  5. CYCLOBENZAPRINE [Concomitant]
     Dosage: 10 MG, UNK
     Route: 048
  6. JANUMET [Concomitant]
     Dosage: UNK UNK, BID
     Route: 048
  7. YAZ [Suspect]
     Indication: PRODUCT USED FOR UNKNOWN INDICATION
     Route: 048
     Dates: start: 20071001, end: 20080401
  8. METFORMIN HCL [Concomitant]
     Dosage: 500 MG, UNK
     Route: 048
  9. LEXAPRO [Concomitant]
     Dosage: 20 MG, QD
     Route: 048
  10. SIMVASTATIN [Concomitant]
     Dosage: 10 MG, UNK
     Route: 048
  11. ESTRADIOL [Concomitant]
     Dosage: 0.1 MG, UNK
     Dates: end: 20080429
  12. NABUMETONE [Concomitant]
     Dosage: 750 MG, UNK
     Route: 048
  13. LEVAQUIN [Concomitant]
     Route: 048
  14. YASMIN [Suspect]
     Indication: PRODUCT USED FOR UNKNOWN INDICATION
     Route: 048
     Dates: start: 20071001, end: 20080401
  15. DIOVAN HCT [Concomitant]
     Dosage: 320/25MG
     Route: 048
  16. PROTONIX [Concomitant]
     Dosage: 40 MG, QD
     Route: 048
  17. UNCODEABLE ^UNCLASSIFIABLE^ [Concomitant]
     Route: 048
  18. LYRICA [Concomitant]
     Dosage: 75 MG, UNK
     Route: 048

REACTIONS (1)
  - PELVIC VENOUS THROMBOSIS [None]
